FAERS Safety Report 7879792-5 (Version None)
Quarter: 2011Q4

REPORT INFORMATION
  Report Type: 
  Country: None (occurrence: None)
  Receive Date: 20111101
  Receipt Date: 20100520
  Transmission Date: 20120403
  Serious: No
  Sender: FDA-Public Use
  Company Number: US-BAYER-201023665NA

PATIENT

DRUGS (1)
  1. AVELOX [Suspect]
     Indication: ABDOMINAL INFECTION

REACTIONS (1)
  - GASTRIC DISORDER [None]
